FAERS Safety Report 9056018 (Version 1)
Quarter: 2013Q1

REPORT INFORMATION
  Report Type: Spontaneous
  Country: NL (occurrence: NL)
  Receive Date: 20130205
  Receipt Date: 20130205
  Transmission Date: 20140127
  Serious: Yes (Other)
  Sender: FDA-Public Use
  Company Number: NL-JNJFOC-20130112838

PATIENT
  Sex: 0

DRUGS (1)
  1. INFLIXIMAB, RECOMBINANT [Suspect]
     Indication: INFLAMMATORY BOWEL DISEASE
     Route: 042

REACTIONS (11)
  - Nervous system disorder [Unknown]
  - Hypersensitivity [Unknown]
  - Skin disorder [Unknown]
  - Dyspnoea [Unknown]
  - Arthralgia [Unknown]
  - Myalgia [Unknown]
  - Abdominal pain [Unknown]
  - Alopecia [Unknown]
  - Fatigue [Unknown]
  - Malaise [Unknown]
  - Affect lability [Unknown]
